FAERS Safety Report 6962354-1 (Version None)
Quarter: 2010Q3

REPORT INFORMATION
  Report Type: 
  Country: None (occurrence: None)
  Receive Date: 20100823
  Receipt Date: 20100616
  Transmission Date: 20110219
  Serious: No
  Sender: FDA-Public Use
  Company Number: 014068

PATIENT
  Age: 28 Year
  Sex: Female
  Weight: 131.5 kg

DRUGS (7)
  1. CIMZIA [Suspect]
     Indication: RHEUMATOID ARTHRITIS
     Dosage: (SUBCUTANEOUS)
     Route: 058
     Dates: start: 20100607
  2. PREDNISONE [Concomitant]
  3. PREVACID [Concomitant]
  4. AMBIEN [Concomitant]
  5. PROZAC /00724401/ [Concomitant]
  6. LOESTRIN 1.5/30 [Concomitant]
  7. MULTI-VITAMINS [Concomitant]

REACTIONS (2)
  - DIZZINESS [None]
  - VERTIGO [None]
